FAERS Safety Report 5515434-1 (Version None)
Quarter: 2007Q4

REPORT INFORMATION
  Report Type: 
  Country: None (occurrence: None)
  Receive Date: 20071113
  Receipt Date: 20070503
  Transmission Date: 20080405
  Serious: No
  Sender: FDA-Public Use
  Company Number: A0639582A

PATIENT
  Age: 76 Year
  Sex: Male
  Weight: 87.3 kg

DRUGS (8)
  1. COREG [Suspect]
     Dosage: 6.25MG TWICE PER DAY
     Route: 048
     Dates: start: 20040101, end: 20070215
  2. SIMVASTATIN [Suspect]
     Indication: BLOOD CHOLESTEROL INCREASED
     Dosage: 40MG AT NIGHT
     Route: 048
     Dates: start: 20020101, end: 20070201
  3. FLUVASTATIN [Concomitant]
     Dates: end: 20070301
  4. LISINOPRIL [Concomitant]
  5. GLYBURIDE [Concomitant]
  6. FUROSEMIDE [Concomitant]
  7. DIGOXIN [Concomitant]
  8. ASPIRIN [Concomitant]

REACTIONS (7)
  - ABASIA [None]
  - ASTHENIA [None]
  - DIZZINESS POSTURAL [None]
  - DYSPNOEA [None]
  - HEART RATE DECREASED [None]
  - INSOMNIA [None]
  - MYALGIA [None]
